FAERS Safety Report 4437749-0 (Version None)
Quarter: 2004Q3

REPORT INFORMATION
  Report Type: 
  Country: None (occurrence: None)
  Receive Date: 20040831
  Receipt Date: 20040203
  Transmission Date: 20050211
  Serious: Yes (Death)
  Sender: FDA-Public Use
  Company Number: US-AMGEN-US065882

PATIENT
  Sex: Male

DRUGS (8)
  1. ETANERCEPT [Suspect]
     Indication: PULMONARY FIBROSIS
     Route: 058
     Dates: start: 20031016, end: 20040105
  2. ZANTAC [Concomitant]
     Dates: start: 19750101, end: 20040122
  3. PROTONIX [Concomitant]
     Dates: start: 19960101, end: 20040122
  4. LASIX [Concomitant]
     Dates: start: 20030827, end: 20040122
  5. ZOCOR [Concomitant]
     Dates: start: 19820101, end: 20040122
  6. TYLENOL [Concomitant]
     Dates: start: 19980101, end: 20040122
  7. LIBRAX [Concomitant]
     Dates: end: 20040122
  8. NASAL SALINE [Concomitant]
     Dates: start: 20031103, end: 20040122

REACTIONS (2)
  - DISEASE PROGRESSION [None]
  - INTERSTITIAL LUNG DISEASE [None]
